FAERS Safety Report 22038895 (Version 1)
Quarter: 2023Q1

REPORT INFORMATION
  Report Type: Spontaneous
  Country: US (occurrence: US)
  Receive Date: 20230227
  Receipt Date: 20230227
  Transmission Date: 20230417
  Serious: No
  Sender: FDA-Public Use
  Company Number: US-IGSA-BIG0020420

PATIENT
  Age: 70 Year
  Sex: Female
  Weight: 54 kg

DRUGS (10)
  1. PROLASTIN-C LIQUID [Suspect]
     Active Substance: .ALPHA.1-PROTEINASE INHIBITOR HUMAN
     Indication: Alpha-1 antitrypsin deficiency
     Dosage: 3240 MILLIGRAM, Q.WK.
     Route: 042
     Dates: start: 20220907
  2. EPIPEN [Concomitant]
     Active Substance: EPINEPHRINE
  3. MYRBETRIQ [Concomitant]
     Active Substance: MIRABEGRON
  4. ROPINIROLE [Concomitant]
     Active Substance: ROPINIROLE
  5. SYNTHROID [Concomitant]
     Active Substance: LEVOTHYROXINE SODIUM
  6. TRELEGY ELLIPTA [Concomitant]
     Active Substance: FLUTICASONE FUROATE\UMECLIDINIUM BROMIDE\VILANTEROL TRIFENATATE
  7. XARELTO [Concomitant]
     Active Substance: RIVAROXABAN
  8. EZETIMIBE [Concomitant]
     Active Substance: EZETIMIBE
  9. ALBUTEROL SULFATE [Concomitant]
     Active Substance: ALBUTEROL SULFATE
  10. LISINOPRIL [Concomitant]
     Active Substance: LISINOPRIL

REACTIONS (2)
  - Diarrhoea [Not Recovered/Not Resolved]
  - Intentional dose omission [Not Recovered/Not Resolved]

NARRATIVE: CASE EVENT DATE: 20220914
